FAERS Safety Report 24746025 (Version 1)
Quarter: 2024Q4

REPORT INFORMATION
  Report Type: Spontaneous
  Country: US (occurrence: US)
  Receive Date: 20241218
  Receipt Date: 20241218
  Transmission Date: 20250115
  Serious: Yes (Other)
  Sender: SPECGX
  Company Number: US-SPECGX-T202402314

PATIENT
  Age: 72 Year
  Sex: Female

DRUGS (6)
  1. ACETAMINOPHEN\HYDROCODONE [Suspect]
     Active Substance: ACETAMINOPHEN\HYDROCODONE
     Indication: Pain
     Dosage: 5/325 MG (3 TIMES A DAY)
     Route: 065
  2. INSULIN NOS [Concomitant]
     Active Substance: INSULIN NOS
     Indication: Type 2 diabetes mellitus
     Dosage: UNK
     Route: 065
  3. PANTOPRAZOLE [Concomitant]
     Active Substance: PANTOPRAZOLE
     Indication: Dyspepsia
     Dosage: UNK
     Route: 065
  4. VITAMIN D3 [Concomitant]
     Active Substance: CHOLECALCIFEROL
     Indication: Product used for unknown indication
     Dosage: UNK
     Route: 065
  5. VITAMINS [Concomitant]
     Active Substance: VITAMINS
     Indication: Product used for unknown indication
     Dosage: UNK
     Route: 065
  6. ZANTAC [Concomitant]
     Active Substance: RANITIDINE HYDROCHLORIDE
     Indication: Antacid therapy
     Dosage: UNK
     Route: 065

REACTIONS (15)
  - Renal failure [Unknown]
  - Seizure [Unknown]
  - Chronic obstructive pulmonary disease [Unknown]
  - Asthma [Unknown]
  - Atrial fibrillation [Unknown]
  - Hepatic steatosis [Unknown]
  - Bladder cancer [Unknown]
  - Anaemia [Unknown]
  - Pulmonary mass [Unknown]
  - Hypertension [Unknown]
  - Fluid retention [Unknown]
  - Gout [Unknown]
  - Dyspepsia [Unknown]
  - Osteoarthritis [Unknown]
  - Drug screen false positive [Recovered/Resolved]

NARRATIVE: CASE EVENT DATE: 20241101
